FAERS Safety Report 6030597-X (Version None)
Quarter: 2009Q1

REPORT INFORMATION
  Report Type: 
  Country: None (occurrence: None)
  Receive Date: 20090106
  Receipt Date: 20090106
  Transmission Date: 20090719
  Serious: Yes (Other)
  Sender: FDA-Public Use
  Company Number: None

PATIENT
  Sex: Female
  Weight: 98.4 kg

DRUGS (1)
  1. VANCOMYCIN HYDROCHLORIDE [Suspect]
     Indication: PNEUMONIA
     Dosage: 1500MG PER VANCO-LEVELS IV 4 DOSES GIVEN
     Route: 042
     Dates: start: 20081007, end: 20081011

REACTIONS (2)
  - ANTI-PLATELET ANTIBODY POSITIVE [None]
  - PLATELET COUNT DECREASED [None]
